FAERS Safety Report 10307968 (Version 1)
Quarter: 2014Q3

REPORT INFORMATION
  Report Type: Spontaneous
  Country: US (occurrence: None)
  Receive Date: 20140714
  Receipt Date: 20140714
  Transmission Date: 20150326
  Serious: Yes (Other)
  Sender: FDA-Public Use
  Company Number: None

PATIENT
  Age: 35 Year
  Sex: Male

DRUGS (1)
  1. ATOVAQUONE. [Suspect]
     Active Substance: ATOVAQUONE
     Indication: MALARIA PROPHYLAXIS
     Dates: start: 20121205, end: 20130105

REACTIONS (3)
  - Alanine aminotransferase increased [None]
  - Aspartate aminotransferase increased [None]
  - Drug-induced liver injury [None]

NARRATIVE: CASE EVENT DATE: 20130109
